FAERS Safety Report 6149229-5 (Version None)
Quarter: 2009Q2

REPORT INFORMATION
  Report Type: 
  Country: None (occurrence: None)
  Receive Date: 20090407
  Receipt Date: 20090327
  Transmission Date: 20091009
  Serious: Yes (Life-Threatening, Hospitalization)
  Sender: FDA-Public Use
  Company Number: 2009040003

PATIENT
  Age: 75 Year
  Sex: Female

DRUGS (5)
  1. TORSEMIDE [Suspect]
     Indication: HYPERTENSION
     Dosage: 5 MG (5 MG, 1 IN 1 D),ORAL
     Route: 048
  2. DIOVAN [Concomitant]
  3. URSO FALK [Concomitant]
  4. ASPIRIN CADIO [Concomitant]
  5. CORVATON RETARD (MOLSIDOMINE) [Concomitant]

REACTIONS (12)
  - ANAEMIA [None]
  - ELECTROCARDIOGRAM QT PROLONGED [None]
  - HYPERGLYCAEMIA [None]
  - HYPERLIPIDAEMIA [None]
  - HYPERURICAEMIA [None]
  - HYPOKALAEMIA [None]
  - LEUKOPENIA [None]
  - MALNUTRITION [None]
  - METABOLIC DISORDER [None]
  - PULSE ABSENT [None]
  - THROMBOCYTOPENIA [None]
  - TORSADE DE POINTES [None]
